FAERS Safety Report 17228732 (Version 16)
Quarter: 2025Q1

REPORT INFORMATION
  Report Type: Spontaneous
  Country: US (occurrence: US)
  Receive Date: 20200103
  Receipt Date: 20250106
  Transmission Date: 20250409
  Serious: No
  Sender: VERTEX
  Company Number: US-VERTEX PHARMACEUTICALS-2019-013821

PATIENT
  Sex: Female
  Weight: 59 kg

DRUGS (32)
  1. TRIKAFTA [Suspect]
     Active Substance: ELEXACAFTOR\IVACAFTOR\TEZACAFTOR
     Indication: Cystic fibrosis
     Dosage: 2 ORANGE TABS AM AND 1 BLUE TAB PM
     Route: 048
     Dates: start: 201910
  2. TRIKAFTA [Suspect]
     Active Substance: ELEXACAFTOR\IVACAFTOR\TEZACAFTOR
     Dosage: 1 ORANGE TAB AM AND 1 BLUE TAB PM
     Route: 048
  3. TRIKAFTA [Suspect]
     Active Substance: ELEXACAFTOR\IVACAFTOR\TEZACAFTOR
     Dosage: 2 ORANGE TABLET IN AM, 1 BLUE TABLET IN PM
     Route: 048
     Dates: start: 20200321
  4. TRIKAFTA [Suspect]
     Active Substance: ELEXACAFTOR\IVACAFTOR\TEZACAFTOR
     Route: 048
  5. TRIKAFTA [Suspect]
     Active Substance: ELEXACAFTOR\IVACAFTOR\TEZACAFTOR
     Dosage: 1 BLUE TABLET
     Route: 048
  6. AMITRIPTYLINE [Concomitant]
     Active Substance: AMITRIPTYLINE
  7. DICLOFENAC [Concomitant]
     Active Substance: DICLOFENAC
  8. DOXYCYCLINE HYCLATE [Concomitant]
     Active Substance: DOXYCYCLINE HYCLATE
  9. FLAVOXATE [Concomitant]
     Active Substance: FLAVOXATE
  10. FLUCONAZOLE [Concomitant]
     Active Substance: FLUCONAZOLE
  11. SODIUM CHLORIDE [Concomitant]
     Active Substance: SODIUM CHLORIDE
  12. LEVOFLOXACIN [Concomitant]
     Active Substance: LEVOFLOXACIN
  13. LEVOTHYROXINE [Concomitant]
     Active Substance: LEVOTHYROXINE
  14. METRONIDAZOLE [Concomitant]
     Active Substance: METRONIDAZOLE
  15. NITROFURANTOIN [Concomitant]
     Active Substance: NITROFURANTOIN
  16. PROAIR HFA [Concomitant]
     Active Substance: ALBUTEROL SULFATE
  17. TRIAMCINOLONE [Concomitant]
     Active Substance: TRIAMCINOLONE
  18. AZELASTINE [Concomitant]
     Active Substance: AZELASTINE
  19. FLUOCINONIDE [Concomitant]
     Active Substance: FLUOCINONIDE
  20. SPIRONOLACTONE [Concomitant]
     Active Substance: SPIRONOLACTONE
  21. ESTRACE [Concomitant]
     Active Substance: ESTRADIOL
  22. HYDROXYCHLOROQUINE [Concomitant]
     Active Substance: HYDROXYCHLOROQUINE
  23. ALBUTEROL [Concomitant]
     Active Substance: ALBUTEROL
  24. AZITHROMYCIN [Concomitant]
     Active Substance: AZITHROMYCIN
  25. BUDESONIDE [Concomitant]
     Active Substance: BUDESONIDE
  26. CHOLESTYRAMINE [Concomitant]
     Active Substance: CHOLESTYRAMINE
  27. IVERMECTIN [Concomitant]
     Active Substance: IVERMECTIN
  28. LEVOTHYROXINE [Concomitant]
     Active Substance: LEVOTHYROXINE
  29. OSMOPREP [Concomitant]
     Active Substance: SODIUM PHOSPHATE, DIBASIC, ANHYDROUS\SODIUM PHOSPHATE, MONOBASIC, MONOHYDRATE
  30. PREDNISONE [Concomitant]
     Active Substance: PREDNISONE
  31. TRIAMCINOLON HBF [Concomitant]
  32. EZETIMIBE [Concomitant]
     Active Substance: EZETIMIBE

REACTIONS (26)
  - Weight increased [Unknown]
  - Rash [Unknown]
  - Abdominal discomfort [Not Recovered/Not Resolved]
  - Headache [Recovered/Resolved]
  - Rash pruritic [Recovered/Resolved]
  - Rash erythematous [Recovering/Resolving]
  - Alopecia [Not Recovered/Not Resolved]
  - Pain of skin [Not Recovered/Not Resolved]
  - Syncope [Not Recovered/Not Resolved]
  - Fatigue [Not Recovered/Not Resolved]
  - Pulmonary congestion [Unknown]
  - Skin burning sensation [Not Recovered/Not Resolved]
  - Lung disorder [Unknown]
  - Dry eye [Unknown]
  - Sinus disorder [Not Recovered/Not Resolved]
  - Blood cholesterol increased [Not Recovered/Not Resolved]
  - Musculoskeletal discomfort [Not Recovered/Not Resolved]
  - Muscle strength abnormal [Recovered/Resolved]
  - Cough [Recovered/Resolved]
  - Epigastric discomfort [Not Recovered/Not Resolved]
  - Eructation [Not Recovered/Not Resolved]
  - Muscle spasms [Recovered/Resolved]
  - Increased bronchial secretion [Recovered/Resolved]
  - Urinary tract infection [Not Recovered/Not Resolved]
  - Dizziness [Not Recovered/Not Resolved]
  - Flatulence [Not Recovered/Not Resolved]

NARRATIVE: CASE EVENT DATE: 20190101
